FAERS Safety Report 9104177 (Version 1)
Quarter: 2013Q1

REPORT INFORMATION
  Report Type: Report from Study
  Country: NL (occurrence: NL)
  Receive Date: 20130219
  Receipt Date: 20130219
  Transmission Date: 20140127
  Serious: Yes (Hospitalization)
  Sender: FDA-Public Use
  Company Number: NL-JNJFOC-20110310892

PATIENT
  Age: 64 Year
  Sex: Male
  Weight: 72 kg

DRUGS (7)
  1. ABIRATERONE ACETATE [Suspect]
     Route: 048
  2. ABIRATERONE ACETATE [Suspect]
     Indication: PROSTATE CANCER METASTATIC
     Route: 048
     Dates: start: 20110225, end: 20110320
  3. PREDNISONE [Suspect]
     Indication: PROSTATE CANCER METASTATIC
     Dosage: 5 (UNITS UNSPECIFIED)
     Route: 065
  4. DICLOFENAC [Concomitant]
     Indication: PAIN
     Dosage: 25 (UNITS UNSPECIFIED)
     Route: 065
  5. OXYNORM [Concomitant]
     Indication: PAIN
     Dosage: 10 (UNITS UNSPECIFIED)
     Route: 065
  6. OXYCONTIN [Concomitant]
     Indication: PAIN
     Dosage: 50 (UNITS UNSPECIFIED)
     Route: 065
  7. NEXIUM [Concomitant]
     Dosage: 40 (UNITS UNSPECIFIED)
     Route: 065

REACTIONS (1)
  - Epilepsy [Recovered/Resolved]
